FAERS Safety Report 13373397 (Version 1)
Quarter: 2017Q1

REPORT INFORMATION
  Report Type: Spontaneous
  Country: CA (occurrence: CA)
  Receive Date: 20170327
  Receipt Date: 20170327
  Transmission Date: 20170429
  Serious: Yes (Other)
  Sender: FDA-Public Use
  Company Number: CA-TEVA-752384ACC

PATIENT
  Age: 20 Year
  Sex: Female

DRUGS (1)
  1. RATIO-BUPROPION SR [Suspect]
     Active Substance: BUPROPION
     Indication: DEPRESSION
     Dosage: 150 MILLIGRAM DAILY;
     Route: 048

REACTIONS (3)
  - Feeling abnormal [Unknown]
  - Tunnel vision [Unknown]
  - Feeling hot [Unknown]
